FAERS Safety Report 4712886-1 (Version None)
Quarter: 2005Q3

REPORT INFORMATION
  Report Type: 
  Country: None (occurrence: None)
  Receive Date: 20050712
  Receipt Date: 20050712
  Transmission Date: 20060218
  Serious: No
  Sender: FDA-Public Use
  Company Number: None

PATIENT
  Age: 60 Year
  Sex: Male
  Weight: 74 kg

DRUGS (11)
  1. ISOFLURANE [Suspect]
     Indication: HEART TRANSPLANT
     Dosage: OTHER
     Route: 050
     Dates: start: 20050501, end: 20050501
  2. ISOFLURANE [Suspect]
     Indication: RENAL TRANSPLANT
     Dosage: OTHER
     Route: 050
     Dates: start: 20050501, end: 20050501
  3. SOLU-MEDROL [Concomitant]
  4. SIMULECT [Concomitant]
  5. CEFUROXIME [Concomitant]
  6. SUFENTANIL CITRATE [Concomitant]
  7. KETAMINE [Concomitant]
  8. SUCCINYLCHOLINE [Concomitant]
  9. NIMBEX [Concomitant]
  10. APROTININ [Concomitant]
  11. DESFLURANE [Concomitant]

REACTIONS (2)
  - ALANINE AMINOTRANSFERASE INCREASED [None]
  - ASPARTATE AMINOTRANSFERASE INCREASED [None]
